FAERS Safety Report 14103970 (Version 1)
Quarter: 2017Q4

REPORT INFORMATION
  Report Type: Spontaneous
  Country: US (occurrence: US)
  Receive Date: 20171018
  Receipt Date: 20171018
  Transmission Date: 20180321
  Serious: Yes (Other)
  Sender: FDA-Public Use
  Company Number: US-AMGEN-USASP2017067748

PATIENT
  Age: 58 Year
  Sex: Female
  Weight: 76.19 kg

DRUGS (1)
  1. PROLIA [Suspect]
     Active Substance: DENOSUMAB
     Indication: OSTEOPOROSIS POSTMENOPAUSAL
     Dosage: 60 MG, Q6MO
     Route: 058
     Dates: start: 2015

REACTIONS (19)
  - Swelling face [Recovered/Resolved]
  - Facial pain [Unknown]
  - Abdominal pain [Unknown]
  - Eye swelling [Unknown]
  - Pyrexia [Recovered/Resolved]
  - Eye pruritus [Unknown]
  - Erythema [Recovered/Resolved]
  - Ocular hyperaemia [Unknown]
  - Lacrimation increased [Unknown]
  - Dyspnoea [Unknown]
  - Pain in jaw [Not Recovered/Not Resolved]
  - Feeling hot [Unknown]
  - Swelling [Recovered/Resolved]
  - Tenderness [Unknown]
  - Dysphagia [Unknown]
  - Hypoaesthesia oral [Recovered/Resolved]
  - Skin reaction [Unknown]
  - Pruritus [Unknown]
  - Rash [Unknown]

NARRATIVE: CASE EVENT DATE: 201704
